FAERS Safety Report 21707366 (Version 1)
Quarter: 2022Q4

REPORT INFORMATION
  Report Type: Spontaneous
  Country: IT (occurrence: None)
  Receive Date: 20221209
  Receipt Date: 20221209
  Transmission Date: 20230113
  Serious: Yes (Life-Threatening, Other)
  Sender: FDA-Public Use
  Company Number: 2022A399557

PATIENT
  Age: 14 Year
  Sex: Female

DRUGS (4)
  1. QUETIAPINE FUMARATE [Suspect]
     Active Substance: QUETIAPINE FUMARATE
     Indication: Affective disorder
     Dosage: DOSAGGIO: 2000 UNITA DI MISURA: MILLIGRAMMI FREQUENZA SOMMINISTRAZIONE: TOTALE VIA SOMMINISTRAZIO...
     Route: 048
     Dates: start: 20220926
  2. KETOPROFEN\SUCRALFATE [Suspect]
     Active Substance: KETOPROFEN\SUCRALFATE
     Dosage: DOSAGGIO: 25 UNITA DI MISURA: MILLIGRAMMI FREQUENZA SOMMINISTRAZIONE: TOTALE VIA SOMMINISTRAZIONE...
     Route: 048
  3. ACETAMINOPHEN [Suspect]
     Active Substance: ACETAMINOPHEN
     Dosage: DOSAGGIO: 1000 UNITA DI MISURA: MILLIGRAMMI FREQUENZA SOMMINISTRAZIONE: TOTALE VIA SOMMINISTRAZIO...
     Route: 048
     Dates: start: 20220926
  4. MELATONIN [Suspect]
     Active Substance: MELATONIN
     Dosage: DOSAGGIO: 24 UNITA DI MISURA: UNITA POSOLOGICA FREQUENZA SOMMINISTRAZIONE: TOTALE VIA SOMMINISTRA...
     Route: 048
     Dates: start: 20220726

REACTIONS (4)
  - Drug abuse [Recovering/Resolving]
  - Sopor [Recovering/Resolving]
  - Vomiting [Recovering/Resolving]
  - Self-injurious ideation [Unknown]

NARRATIVE: CASE EVENT DATE: 20220927
